FAERS Safety Report 5942302-3 (Version None)
Quarter: 2008Q4

REPORT INFORMATION
  Report Type: 
  Country: None (occurrence: None)
  Receive Date: 20081105
  Receipt Date: 20081021
  Transmission Date: 20090506
  Serious: Yes (Death, Hospitalization)
  Sender: FDA-Public Use
  Company Number: ES-CELGENEUS-AZAES200800329

PATIENT
  Sex: Male
  Weight: 68 kg

DRUGS (11)
  1. VIDAZA [Suspect]
     Indication: MYELODYSPLASTIC SYNDROME
     Route: 058
     Dates: start: 20080821, end: 20080828
  2. VIDAZA [Suspect]
     Route: 058
     Dates: start: 20080917
  3. TRANEXAMIC ACID [Concomitant]
     Indication: DRUG USE FOR UNKNOWN INDICATION
  4. VANCOMYCIN [Concomitant]
     Indication: DRUG USE FOR UNKNOWN INDICATION
  5. IMIPENEM [Concomitant]
     Indication: DRUG USE FOR UNKNOWN INDICATION
  6. CASPOFUNGIN [Concomitant]
     Indication: DRUG USE FOR UNKNOWN INDICATION
  7. VITAMIN B6 [Concomitant]
     Indication: DRUG USE FOR UNKNOWN INDICATION
  8. VORICONAZOLE [Concomitant]
     Indication: DRUG USE FOR UNKNOWN INDICATION
  9. MAGNESIUM METAMIZOLE [Concomitant]
     Indication: DRUG USE FOR UNKNOWN INDICATION
  10. TRAMADOL HCL [Concomitant]
     Indication: DRUG USE FOR UNKNOWN INDICATION
  11. NEUPOGEN [Concomitant]
     Indication: NEUTROPENIA

REACTIONS (4)
  - CARDIO-RESPIRATORY ARREST [None]
  - COLITIS ISCHAEMIC [None]
  - HYPOTENSION [None]
  - RENAL FAILURE [None]
